FAERS Safety Report 9498900 (Version 2)
Quarter: 2013Q3

REPORT INFORMATION
  Report Type: Report from Study
  Country: FR (occurrence: FR)
  Receive Date: 20130904
  Receipt Date: 20130913
  Transmission Date: 20140515
  Serious: Yes (Hospitalization)
  Sender: FDA-Public Use
  Company Number: FR-ROCHE-1269547

PATIENT
  Age: 62 Year
  Sex: Female

DRUGS (11)
  1. FOLINIC ACID [Suspect]
     Indication: COLORECTAL CANCER METASTATIC
     Route: 041
  2. INNOHEP [Concomitant]
     Indication: THROMBOSIS
     Route: 065
  3. PANTOPRAZOLE [Concomitant]
     Indication: GASTROOESOPHAGEAL REFLUX DISEASE
     Route: 065
  4. CORTANCYL [Concomitant]
     Route: 065
  5. ADENURIC [Concomitant]
     Indication: HYPERURICAEMIA
     Route: 065
  6. ADVAGRAF [Concomitant]
     Route: 065
  7. BEVACIZUMAB [Suspect]
     Indication: INVASIVE LOBULAR BREAST CARCINOMA
     Dosage: LAST DOSE PRIOR TO SAE ON 05/JUN/2013, 350 MG
     Route: 041
     Dates: start: 20130605
  8. BEVACIZUMAB [Suspect]
     Indication: COLORECTAL CANCER METASTATIC
     Dosage: LAST DOSE PRIOR TO SAE ON 05/JUN/2013, 350 MG
     Route: 041
     Dates: start: 20130625
  9. IRINOTECAN [Suspect]
     Indication: COLORECTAL CANCER METASTATIC
     Route: 041
     Dates: start: 20130417
  10. FLUOROURACIL [Suspect]
     Indication: COLORECTAL CANCER METASTATIC
     Route: 040
     Dates: start: 20130417
  11. FLUOROURACIL [Suspect]
     Route: 041
     Dates: start: 20130417

REACTIONS (1)
  - Tumour necrosis [Recovered/Resolved]
